FAERS Safety Report 8809502 (Version 1)
Quarter: 2012Q4

REPORT INFORMATION
  Report Type: 
  Country: US (occurrence: US)
  Receive Date: 20120926
  Receipt Date: 20120926
  Transmission Date: 20130627
  Serious: No
  Sender: FDA-Public Use
  Company Number: US-ASTRAZENECA-2012SE71440

PATIENT
  Age: 8527 Day
  Sex: Female
  Weight: 54.4 kg

DRUGS (2)
  1. NEXIUM [Suspect]
     Indication: CHEST PAIN
     Route: 048
     Dates: start: 20120911
  2. BIRTH CONTROL PILL [Concomitant]
     Indication: CONTRACEPTION

REACTIONS (2)
  - Chest discomfort [Unknown]
  - Off label use [Unknown]
